FAERS Safety Report 8365196-8 (Version None)
Quarter: 2012Q2

REPORT INFORMATION
  Report Type: 
  Country: None (occurrence: None)
  Receive Date: 20120516
  Receipt Date: 20120509
  Transmission Date: 20120825
  Serious: Yes (Other)
  Sender: FDA-Public Use
  Company Number: BE-ABBOTT-12P-013-0931737-00

PATIENT
  Age: 67 Year
  Sex: Male

DRUGS (6)
  1. NASONEX [Concomitant]
     Indication: PRODUCT USED FOR UNKNOWN INDICATION
  2. FLUTICASONE PROPIONATE [Concomitant]
     Indication: PRODUCT USED FOR UNKNOWN INDICATION
  3. SPIRIVA [Concomitant]
     Indication: PRODUCT USED FOR UNKNOWN INDICATION
  4. LAMICTAL [Concomitant]
     Indication: EPILEPSY
     Route: 048
  5. HUMIRA [Suspect]
     Indication: PSORIASIS
     Dates: start: 20111017, end: 20120425
  6. ASPIRIN [Concomitant]
     Indication: PRODUCT USED FOR UNKNOWN INDICATION

REACTIONS (1)
  - SUPRAVENTRICULAR EXTRASYSTOLES [None]
